FAERS Safety Report 5606033-1 (Version None)
Quarter: 2008Q1

REPORT INFORMATION
  Report Type: 
  Country: None (occurrence: None)
  Receive Date: 20080123
  Receipt Date: 20080123
  Transmission Date: 20080703
  Serious: Yes (Other)
  Sender: FDA-Public Use
  Company Number: None

PATIENT
  Age: 51 Year
  Sex: Female
  Weight: 83.9154 kg

DRUGS (1)
  1. BENICAR [Suspect]
     Indication: HYPERTENSION
     Dosage: 20 MG ONCE DAILY PO
     Route: 048
     Dates: start: 20070201, end: 20080120

REACTIONS (11)
  - CHEST DISCOMFORT [None]
  - FATIGUE [None]
  - HYPERTENSION [None]
  - MYALGIA [None]
  - NASAL CONGESTION [None]
  - NASOPHARYNGITIS [None]
  - PRURITUS [None]
  - SINUS CONGESTION [None]
  - URTICARIA [None]
  - VISION BLURRED [None]
  - WEIGHT INCREASED [None]
